FAERS Safety Report 19270159 (Version 5)
Quarter: 2022Q3

REPORT INFORMATION
  Report Type: Report from Study
  Country: PA (occurrence: PA)
  Receive Date: 20210518
  Receipt Date: 20220906
  Transmission Date: 20221027
  Serious: Yes (Other)
  Sender: FDA-Public Use
  Company Number: NVSC2021PA102329

PATIENT
  Sex: Female
  Weight: 71.655 kg

DRUGS (8)
  1. KISQALI [Suspect]
     Active Substance: RIBOCICLIB
     Indication: Breast cancer metastatic
     Dosage: 400 MG, QD
     Route: 048
     Dates: start: 20181101, end: 201902
  2. KISQALI [Suspect]
     Active Substance: RIBOCICLIB
     Dosage: 400 MG, QD
     Route: 048
     Dates: start: 202102
  3. KISQALI [Suspect]
     Active Substance: RIBOCICLIB
     Dosage: 400 MG, QD
     Route: 048
     Dates: start: 20210226
  4. KISQALI [Suspect]
     Active Substance: RIBOCICLIB
     Dosage: 3 DOSAGE FORM, QD
     Route: 048
     Dates: start: 20210301
  5. KISQALI [Suspect]
     Active Substance: RIBOCICLIB
     Dosage: 400 MG, QD
     Route: 048
     Dates: start: 20210301
  6. KISQALI [Suspect]
     Active Substance: RIBOCICLIB
     Dosage: 2 DOSAGE FORM
     Route: 048
     Dates: start: 202202
  7. EXEMESTANE [Concomitant]
     Active Substance: EXEMESTANE
     Indication: Hormone therapy
     Dosage: 25 MG
     Route: 065
  8. EXEMESTANE [Concomitant]
     Active Substance: EXEMESTANE
     Indication: Product used for unknown indication
     Dosage: UNK
     Route: 065

REACTIONS (13)
  - Bone lesion [Unknown]
  - Seizure [Unknown]
  - Dermatitis allergic [Unknown]
  - Breast cancer recurrent [Unknown]
  - Hypersensitivity [Recovering/Resolving]
  - Tumour marker decreased [Unknown]
  - Gait disturbance [Unknown]
  - Bone disorder [Unknown]
  - Tumour marker abnormal [Unknown]
  - Stress [Unknown]
  - Joint swelling [Unknown]
  - Fluid retention [Unknown]
  - Peripheral swelling [Unknown]

NARRATIVE: CASE EVENT DATE: 20180101
